FAERS Safety Report 7245027-X (Version None)
Quarter: 2011Q1

REPORT INFORMATION
  Report Type: 
  Country: None (occurrence: None)
  Receive Date: 20110118
  Receipt Date: 20110105
  Transmission Date: 20110831
  Serious: Yes (Death)
  Sender: FDA-Public Use
  Company Number: 2010176313

PATIENT
  Age: 55 Year
  Sex: Female

DRUGS (8)
  1. MORPHINE SULFATE INJ [Concomitant]
  2. CITALOPRAM (CITALOPRAM) [Concomitant]
  3. ATORVASTATIN (ATORVASTATIN) [Concomitant]
  4. DALTEPARIN SODIUM [Suspect]
     Indication: LUNG NEOPLASM MALIGNANT
     Dates: start: 20101123
  5. INSULIN GLARGINE (INSULIN GLARGINE) [Concomitant]
  6. METFORMIN HCL [Concomitant]
  7. OMEPRAZOLE [Concomitant]
  8. INSULIN ASPART (INSULIN ASPART) [Concomitant]

REACTIONS (12)
  - CIRCULATORY COLLAPSE [None]
  - BLOOD FIBRINOGEN INCREASED [None]
  - MOUTH HAEMORRHAGE [None]
  - C-REACTIVE PROTEIN INCREASED [None]
  - PROTHROMBIN TIME RATIO ABNORMAL [None]
  - BLOOD CREATININE ABNORMAL [None]
  - REFUSAL OF TREATMENT BY PATIENT [None]
  - HAEMATOCRIT DECREASED [None]
  - MEAN CELL VOLUME DECREASED [None]
  - EPISTAXIS [None]
  - PLATELET COUNT ABNORMAL [None]
  - HAEMORRHAGE [None]
